FAERS Safety Report 8606235-6 (Version None)
Quarter: 2012Q3

REPORT INFORMATION
  Report Type: 
  Country: None (occurrence: None)
  Receive Date: 20120820
  Receipt Date: 20120815
  Transmission Date: 20120928
  Serious: Yes (Death, Hospitalization)
  Sender: FDA-Public Use
  Company Number: RU-CELGENEUS-251-C5013-12081725

PATIENT
  Sex: Male
  Weight: 62 kg

DRUGS (9)
  1. LENALIDOMIDE [Suspect]
     Route: 048
     Dates: end: 20120409
  2. VANCOMYCIN [Concomitant]
     Dosage: 1 GRAM
     Route: 041
     Dates: start: 20120427, end: 20120427
  3. ACYCLOVIR [Concomitant]
     Indication: ANTIVIRAL PROPHYLAXIS
     Dosage: 600 MILLIGRAM
     Route: 048
     Dates: start: 20120404, end: 20120423
  4. LENALIDOMIDE [Suspect]
     Dosage: 5 MILLIGRAM
     Route: 048
     Dates: start: 20100616
  5. IMIPENEM [Concomitant]
     Dosage: 2000 MILLIGRAM
     Route: 041
     Dates: start: 20120410, end: 20120414
  6. IMIPENEM [Concomitant]
     Dosage: 1000 MILLIGRAM
     Route: 041
     Dates: start: 20120427, end: 20120428
  7. VANCOMYCIN [Concomitant]
     Dosage: 2 GRAM
     Route: 041
     Dates: start: 20120412, end: 20120414
  8. SULFAMETHOXAZOLE AND TRIMETHOPRIM [Concomitant]
     Indication: PROPHYLAXIS
     Dosage: 480 MILLIGRAM
     Route: 048
     Dates: start: 20120404, end: 20120423
  9. FLUCONAZOLE [Concomitant]
     Dosage: 600 GRAM
     Route: 041
     Dates: start: 20120405, end: 20120423

REACTIONS (1)
  - HODGKIN'S DISEASE [None]
